FAERS Safety Report 8391118-X (Version None)
Quarter: 2012Q1

REPORT INFORMATION
  Report Type: 
  Country: None (occurrence: None)
  Receive Date: 20120323
  Receipt Date: 20110418
  Transmission Date: 20120608
  Serious: Yes (Hospitalization)
  Sender: FDA-Public Use
  Company Number: 163-21880-11042403

PATIENT
  Age: 82 Year
  Sex: Female

DRUGS (2)
  1. REVLIMID [Suspect]
     Indication: MULTIPLE MYELOMA
     Dosage: 10 MG, 1 IN 1D, PO 10 MG, DAILY X 21 DAYS, PO
     Route: 048
     Dates: start: 20100213
  2. REVLIMID [Suspect]
     Indication: MULTIPLE MYELOMA
     Dosage: 10 MG, 1 IN 1D, PO 10 MG, DAILY X 21 DAYS, PO
     Route: 048
     Dates: start: 20100801, end: 20110127

REACTIONS (1)
  - HIP FRACTURE [None]
